FAERS Safety Report 4630845-4 (Version None)
Quarter: 2005Q2

REPORT INFORMATION
  Report Type: 
  Country: None (occurrence: None)
  Receive Date: 20050405
  Receipt Date: 20050405
  Transmission Date: 20051028
  Serious: Yes (Hospitalization)
  Sender: FDA-Public Use
  Company Number: None

PATIENT
  Sex: Female

DRUGS (5)
  1. IFOSFAMIDE [Suspect]
     Dates: start: 20050114
  2. DECADRON [Suspect]
     Dates: start: 20050114
  3. DECADRON [Suspect]
     Dates: start: 20050117
  4. VINCRISTINE [Suspect]
     Dates: start: 20050114
  5. ASPARAGINASE [Suspect]
     Dates: start: 20050115

REACTIONS (2)
  - CEREBRAL HAEMORRHAGE [None]
  - PLATELET COUNT DECREASED [None]
